FAERS Safety Report 14276758 (Version 1)
Quarter: 2017Q4

REPORT INFORMATION
  Report Type: Spontaneous
  Country: US (occurrence: US)
  Receive Date: 20171212
  Receipt Date: 20171212
  Transmission Date: 20180321
  Serious: No
  Sender: FDA-Public Use
  Company Number: US-TEVA-762975USA

PATIENT
  Age: 97 Year
  Sex: Female

DRUGS (1)
  1. LANSOPRAZOLE. [Suspect]
     Active Substance: LANSOPRAZOLE
     Dosage: DELAYED-RELEASE
     Route: 065

REACTIONS (4)
  - Dyspepsia [Unknown]
  - Product physical issue [Unknown]
  - Gastroenteritis viral [Unknown]
  - Adverse event [Unknown]

NARRATIVE: CASE EVENT DATE: 201612
